FAERS Safety Report 6171647-X (Version None)
Quarter: 2009Q2

REPORT INFORMATION
  Report Type: 
  Country: None (occurrence: None)
  Receive Date: 20090424
  Receipt Date: 20081209
  Transmission Date: 20091009
  Serious: No
  Sender: FDA-Public Use
  Company Number: SPV1-2008-02732

PATIENT
  Sex: Female
  Weight: 21.8 kg

DRUGS (2)
  1. VYVANSE [Suspect]
     Indication: ATTENTION DEFICIT/HYPERACTIVITY DISORDER
     Dosage: 50 MG, 1X/DAY; QD, ORAL
     Route: 048
     Dates: start: 20080901
  2. ASCORBIC ACID [Concomitant]

REACTIONS (3)
  - AGGRESSION [None]
  - DRUG EFFECT DELAYED [None]
  - INSOMNIA [None]
